FAERS Safety Report 8418372-X (Version None)
Quarter: 2012Q2

REPORT INFORMATION
  Report Type: 
  Country: None (occurrence: None)
  Receive Date: 20120607
  Receipt Date: 20120525
  Transmission Date: 20120825
  Serious: Yes (Other)
  Sender: FDA-Public Use
  Company Number: JP-PFIZER INC-2012110704

PATIENT
  Age: 82 Year
  Sex: Female

DRUGS (10)
  1. ALENDRONATE SODIUM [Concomitant]
     Dosage: UNK
     Route: 048
  2. LANTUS [Concomitant]
     Dosage: UNK
  3. ALDACTONE [Concomitant]
     Dosage: UNK
  4. LANSOPRAZOLE [Concomitant]
     Dosage: UNK
     Route: 048
  5. CELEBREX [Suspect]
     Dosage: 400MG/DAY
     Route: 048
     Dates: start: 20120411
  6. DIGOXIN [Concomitant]
     Dosage: UNK
  7. METFORMIN HYDROCHLORIDE [Concomitant]
     Dosage: UNK
     Route: 048
  8. NOVORAPID [Concomitant]
     Dosage: UNK
  9. CELEBREX [Suspect]
     Dosage: 100 MG, 2X/DAY
     Route: 048
  10. LIPITOR [Concomitant]
     Dosage: 10 MG, UNK

REACTIONS (1)
  - EYE HAEMORRHAGE [None]
